FAERS Safety Report 16357226 (Version 3)
Quarter: 2019Q2

REPORT INFORMATION
  Report Type: Report from Study
  Country: None (occurrence: TW)
  Receive Date: 20190527
  Receipt Date: 20190612
  Transmission Date: 20190711
  Serious: Yes (Death, Hospitalization, Other)
  Sender: FDA-Public Use
  Company Number: TW-ABBVIE-19K-153-2793560-00

PATIENT
  Age: 71 Year
  Sex: Male
  Weight: 54 kg

DRUGS (2)
  1. HUMIRA [Suspect]
     Active Substance: ADALIMUMAB
     Indication: PSORIATIC ARTHROPATHY
     Route: 058
     Dates: start: 20180104, end: 20190501
  2. HUMIRA [Suspect]
     Active Substance: ADALIMUMAB
     Indication: PSORIATIC ARTHROPATHY
     Route: 058
     Dates: start: 20150224, end: 20180101

REACTIONS (25)
  - Arthralgia [Unknown]
  - Thrombocytopenia [Unknown]
  - Hypophagia [Unknown]
  - Procalcitonin increased [Unknown]
  - C-reactive protein increased [Unknown]
  - Infection [Unknown]
  - Myocardial ischaemia [Unknown]
  - Sinus tachycardia [Unknown]
  - Sepsis [Fatal]
  - Blood pressure decreased [Fatal]
  - Pneumonia [Fatal]
  - Dizziness [Unknown]
  - Troponin I increased [Unknown]
  - Nausea [Unknown]
  - Fluid intake reduced [Unknown]
  - Mouth ulceration [Unknown]
  - Pyrexia [Unknown]
  - Oropharyngeal pain [Unknown]
  - Cardiac arrest [Fatal]
  - Productive cough [Unknown]
  - Pancytopenia [Unknown]
  - Fall [Unknown]
  - Chills [Unknown]
  - Asthenia [Unknown]
  - Arthralgia [Unknown]

NARRATIVE: CASE EVENT DATE: 201905
